FAERS Safety Report 7323563-5 (Version None)
Quarter: 2011Q1

REPORT INFORMATION
  Report Type: 
  Country: None (occurrence: None)
  Receive Date: 20110301
  Receipt Date: 20110216
  Transmission Date: 20110831
  Serious: Yes (Other)
  Sender: FDA-Public Use
  Company Number: AU-ELI_LILLY_AND_COMPANY-AU201102004134

PATIENT
  Age: 24 Year
  Sex: Male

DRUGS (4)
  1. ZYPREXA RELPREVV [Suspect]
     Dosage: 300 MG, ONCE EVERY 2WEEKS
     Route: 030
     Dates: start: 20110201
  2. ZYPREXA [Suspect]
     Dosage: 7.5 MG, EACH EVENING
     Route: 048
     Dates: start: 20110201
  3. ZYPREXA [Suspect]
     Indication: SCHIZOPHRENIA
     Dosage: 5 MG, EACH EVENING
     Route: 048
     Dates: start: 20100901
  4. ZYPREXA RELPREVV [Suspect]
     Indication: SCHIZOPHRENIA
     Dosage: 405 MG, ONCE EVERY 2WEEKS
     Route: 030
     Dates: start: 20100901

REACTIONS (7)
  - DISORIENTATION [None]
  - SEDATION [None]
  - AGITATION [None]
  - SOMNOLENCE [None]
  - DYSARTHRIA [None]
  - GAIT DISTURBANCE [None]
  - RESTLESSNESS [None]
